FAERS Safety Report 9642016 (Version 2)
Quarter: 2013Q4

REPORT INFORMATION
  Report Type: Spontaneous
  Country: GB (occurrence: GB)
  Receive Date: 20131023
  Receipt Date: 20131119
  Transmission Date: 20140711
  Serious: Yes (Hospitalization)
  Sender: FDA-Public Use
  Company Number: GB-ROCHE-1291305

PATIENT
  Age: 25 Year
  Sex: Male

DRUGS (21)
  1. CELLCEPT [Suspect]
     Indication: LUNG TRANSPLANT
     Route: 042
  2. CELLCEPT [Suspect]
     Route: 048
     Dates: start: 20130313
  3. CREON [Concomitant]
  4. VITAMINS B + C [Concomitant]
  5. VITAMIN E [Concomitant]
  6. MENADIOL [Concomitant]
  7. FERROUS SULPHATE [Concomitant]
  8. AZITHROMYCIN [Concomitant]
  9. VALGANCICLOVIR [Concomitant]
  10. CO-TRIMOXAZOLE [Concomitant]
  11. SALBUTAMOL NEBULIZED [Concomitant]
  12. COLISTIN NEBULIZER [Concomitant]
  13. METOCLOPRAMIDE [Concomitant]
  14. OMEPRAZOLE [Concomitant]
  15. PREGABALIN [Concomitant]
  16. CALCICHEW D3 [Concomitant]
  17. MAGNESIUM GLYCEROPHOSPHATE [Concomitant]
  18. PROGRAF [Concomitant]
  19. LEVEMIR [Concomitant]
  20. NOVORAPID [Concomitant]
  21. PREDNISOLONE [Concomitant]

REACTIONS (2)
  - Gastrointestinal motility disorder [Recovered/Resolved]
  - Off label use [Unknown]
